FAERS Safety Report 23078821 (Version 3)
Quarter: 2023Q4

REPORT INFORMATION
  Report Type: Spontaneous
  Country: US (occurrence: US)
  Receive Date: 20231018
  Receipt Date: 20231207
  Transmission Date: 20240110
  Serious: No
  Sender: FDA-Public Use
  Company Number: US-PFIZER INC-202300311818

PATIENT
  Age: 12 Year
  Sex: Male
  Weight: 36.74 kg

DRUGS (2)
  1. GENOTROPIN [Suspect]
     Active Substance: SOMATROPIN
     Dosage: 1.4 MG
  2. DEXMETHYLPHENIDATE [Concomitant]
     Active Substance: DEXMETHYLPHENIDATE
     Indication: Attention deficit hyperactivity disorder
     Dosage: 17.5 MG, DAILY (IT^S 10 MILLIGRAMS AND THEN 7.5 SO, THAT^S THE TOTAL FOR THE DAY)

REACTIONS (2)
  - Drug dose omission by device [Unknown]
  - Device breakage [Unknown]
